FAERS Safety Report 19181402 (Version 1)
Quarter: 2021Q2

REPORT INFORMATION
  Report Type: Spontaneous
  Country: NL (occurrence: NL)
  Receive Date: 20210426
  Receipt Date: 20210426
  Transmission Date: 20210717
  Serious: Yes (Hospitalization)
  Sender: FDA-Public Use
  Company Number: NL-NOVOPROD-803397

PATIENT
  Sex: Female

DRUGS (1)
  1. OZEMPIC [Suspect]
     Active Substance: SEMAGLUTIDE
     Indication: PRODUCT USED FOR UNKNOWN INDICATION
     Dosage: 1 DF, QW(1X PER WEEK 1 INJECTION)
     Route: 065
     Dates: start: 20210216, end: 20210401

REACTIONS (3)
  - Urinary tract infection [Unknown]
  - Dysphagia [Recovering/Resolving]
  - Decreased appetite [Recovering/Resolving]
